FAERS Safety Report 5284154-3 (Version None)
Quarter: 2007Q1

REPORT INFORMATION
  Report Type: 
  Country: None (occurrence: None)
  Receive Date: 20070328
  Receipt Date: 20070320
  Transmission Date: 20070707
  Serious: Yes (Other)
  Sender: FDA-Public Use
  Company Number: GXBR2007US00642

PATIENT
  Age: 76 Year
  Sex: Female
  Weight: 74.8 kg

DRUGS (6)
  1. TRIFLUOPERAZINE HCL [Suspect]
     Indication: PROPHYLAXIS
     Dosage: 0.5 MG, BID, ORAL
     Route: 048
     Dates: start: 19770101, end: 20070315
  2. AVAPRO [Concomitant]
  3. REGLAN/USA/(METOCLOPRAMIDE HYDROCHLORIDE) [Concomitant]
  4. RHINOCORT [Concomitant]
  5. MULTIVITAMINS (ASCORBIC CID, ERGOCALCIFEROL, FOLIC ACID, NICOTINAMIDE, [Concomitant]
  6. FISH OIL (FISH OIL) [Concomitant]

REACTIONS (7)
  - DRUG DEPENDENCE [None]
  - DRUG WITHDRAWAL HEADACHE [None]
  - DRUG WITHDRAWAL SYNDROME [None]
  - DYSKINESIA [None]
  - MIGRAINE [None]
  - OEDEMA MUCOSAL [None]
  - ORAL DISCOMFORT [None]
